FAERS Safety Report 24869819 (Version 3)
Quarter: 2025Q4

REPORT INFORMATION
  Report Type: Report from Study
  Country: CA (occurrence: CA)
  Receive Date: 20250121
  Receipt Date: 20251029
  Transmission Date: 20260118
  Serious: Yes (Other)
  Sender: LUNDBECK
  Company Number: CA-LUNDBECK-DKLU4009414

PATIENT
  Age: 39 Year

DRUGS (1)
  1. VYEPTI [Suspect]
     Active Substance: EPTINEZUMAB-JJMR
     Indication: Migraine
     Dosage: 100 MILLIGRAM
     Route: 041
     Dates: start: 20250114

REACTIONS (7)
  - Pulmonary oedema [Unknown]
  - Cough [Unknown]
  - Malaise [Unknown]
  - Throat irritation [Unknown]
  - Wheezing [Unknown]
  - Dyspnoea [Unknown]
  - Migraine [Unknown]

NARRATIVE: CASE EVENT DATE: 20250114
